FAERS Safety Report 15251461 (Version 1)
Quarter: 2018Q3

REPORT INFORMATION
  Report Type: Spontaneous
  Country: AR (occurrence: AR)
  Receive Date: 20180807
  Receipt Date: 20180807
  Transmission Date: 20181010
  Serious: Yes (Death, Other)
  Sender: FDA-Public Use
  Company Number: AR-PFIZER INC-2018314800

PATIENT
  Age: 71 Year
  Sex: Male

DRUGS (1)
  1. INLYTA [Suspect]
     Active Substance: AXITINIB
     Indication: RENAL CANCER
     Dosage: 10 MG, DAILY
     Dates: start: 20180305, end: 20180706

REACTIONS (1)
  - Death [Fatal]

NARRATIVE: CASE EVENT DATE: 20180709
